FAERS Safety Report 7183744-0 (Version None)
Quarter: 2010Q4

REPORT INFORMATION
  Report Type: 
  Country: None (occurrence: None)
  Receive Date: 20101220
  Receipt Date: 20101220
  Transmission Date: 20110411
  Serious: Yes (Hospitalization)
  Sender: FDA-Public Use
  Company Number: None

PATIENT
  Age: 62 Year
  Sex: Female
  Weight: 166.2 kg

DRUGS (16)
  1. DILANTIN [Suspect]
     Indication: CONVULSION
     Dosage: 150MG TWICE DAILY PO  CHRONIC
     Route: 048
  2. CITALOPRAM [Concomitant]
  3. COREG [Concomitant]
  4. MIRALAX [Concomitant]
  5. PREDNISONE [Concomitant]
  6. LANTUS [Concomitant]
  7. VALSARTAN [Concomitant]
  8. ERGOCALCIFEROL [Concomitant]
  9. COLACE [Concomitant]
  10. ZETIA [Concomitant]
  11. OLANZAPINE [Concomitant]
  12. SIMVASTATIN [Concomitant]
  13. NEXIUM [Concomitant]
  14. COUMADIN [Concomitant]
  15. PERCOCET [Concomitant]
  16. CALCIUM W/VIT D [Concomitant]

REACTIONS (5)
  - ANTICONVULSANT DRUG LEVEL INCREASED [None]
  - DEHYDRATION [None]
  - DIZZINESS [None]
  - FALL [None]
  - ORTHOSTATIC HYPOTENSION [None]
